FAERS Safety Report 9603130 (Version 1)
Quarter: 2013Q4

REPORT INFORMATION
  Report Type: Spontaneous
  Country: IT (occurrence: IT)
  Receive Date: 20131007
  Receipt Date: 20131007
  Transmission Date: 20140711
  Serious: Yes (Life-Threatening)
  Sender: FDA-Public Use
  Company Number: IT-TEVA-434749ISR

PATIENT
  Age: 75 Year
  Sex: Female
  Weight: 98 kg

DRUGS (2)
  1. CARBOPLATINO TEVA [Suspect]
     Indication: OVARIAN CANCER
     Dosage: 424 MILLIGRAM DAILY;
     Route: 042
     Dates: start: 20130218, end: 20130415
  2. GEMCITABINA [Concomitant]
     Dosage: 1500 MILLIGRAM DAILY;
     Route: 042

REACTIONS (3)
  - Pruritus [Unknown]
  - Oxygen saturation decreased [Unknown]
  - Flushing [Unknown]
